FAERS Safety Report 19987233 (Version 1)
Quarter: 2021Q4

REPORT INFORMATION
  Report Type: Spontaneous
  Country: FR (occurrence: FR)
  Receive Date: 20211022
  Receipt Date: 20211022
  Transmission Date: 20220304
  Serious: Yes (Other)
  Sender: FDA-Public Use
  Company Number: None

PATIENT
  Age: 67 Year
  Sex: Male
  Weight: 81.8 kg

DRUGS (12)
  1. BISOPROLOL FUMARATE [Suspect]
     Active Substance: BISOPROLOL FUMARATE
     Indication: Cardiac failure
     Dosage: 2.5 MG, THERAPY START DATE :ASKU
     Route: 048
  2. DIGOXIN [Suspect]
     Active Substance: DIGOXIN
     Indication: Arrhythmia
     Dosage: THERAPY START DATE :ASKU, 0.13 MG
     Route: 048
     Dates: end: 20210830
  3. INSULIN GLARGINE [Concomitant]
     Active Substance: INSULIN GLARGINE
     Dosage: THERAPY START DATE :ASKU, 25 IU
     Route: 058
  4. CHOLECALCIFEROL [Concomitant]
     Active Substance: CHOLECALCIFEROL
     Dosage: ORAL SOLUTION IN AMPOULE, 1 DF
     Route: 048
     Dates: start: 20210402
  5. LACTULOSE [Concomitant]
     Active Substance: LACTULOSE
     Dosage: THERAPY START DATE :ASKU,20 GM
     Route: 048
  6. KAYEXALATE, [Concomitant]
     Dosage: THERAPY START DATE :ASKU,1 DF
     Route: 048
  7. AMINO ACIDS, SOURCE UNSPECIFIED [Concomitant]
     Active Substance: AMINO ACIDS, SOURCE UNSPECIFIED
     Dosage: THERAPY START DATE :ASKU,9 DF
     Route: 048
  8. IXPRIM [Concomitant]
     Active Substance: ACETAMINOPHEN\TRAMADOL HYDROCHLORIDE
     Dosage: THERAPY START DATE :ASKU,3 DF,37.5 MG / 325 MG
     Route: 048
     Dates: end: 20210831
  9. FUROSEMIDE [Concomitant]
     Active Substance: FUROSEMIDE
     Dosage: THERAPY START DATE :ASKU,375 MG
     Route: 048
     Dates: end: 20210830
  10. ALLOPURINOL [Concomitant]
     Active Substance: ALLOPURINOL
     Dosage: 100 MG
     Route: 048
     Dates: start: 20210428, end: 20210830
  11. ACETAMINOPHEN [Concomitant]
     Active Substance: ACETAMINOPHEN
     Dosage: THERAPY START DATE :ASKU,1 G
     Route: 048
  12. LANSOPRAZOLE [Concomitant]
     Active Substance: LANSOPRAZOLE
     Dosage: THERAPY START DATE :ASKU,30 MG
     Route: 058

REACTIONS (2)
  - Cardioactive drug level increased [Recovering/Resolving]
  - Sinus bradycardia [Recovering/Resolving]

NARRATIVE: CASE EVENT DATE: 20210901
